FAERS Safety Report 23079179 (Version 1)
Quarter: 2023Q4

REPORT INFORMATION
  Report Type: Spontaneous
  Country: MY (occurrence: MY)
  Receive Date: 20231018
  Receipt Date: 20231018
  Transmission Date: 20240110
  Serious: Yes (Hospitalization)
  Sender: FDA-Public Use
  Company Number: MY-PFIZER INC-PV202300090313

PATIENT
  Age: 56 Year
  Sex: Female

DRUGS (2)
  1. LORLATINIB [Interacting]
     Active Substance: LORLATINIB
     Dosage: 100 MG
  2. BEVACIZUMAB [Interacting]
     Active Substance: BEVACIZUMAB

REACTIONS (3)
  - Drug interaction [Recovered/Resolved]
  - Hypertransaminasaemia [Recovered/Resolved]
  - Neoplasm progression [Unknown]

NARRATIVE: CASE EVENT DATE: 20230301
